FAERS Safety Report 15430669 (Version 1)
Quarter: 2018Q3

REPORT INFORMATION
  Report Type: Spontaneous
  Country: FR (occurrence: FR)
  Receive Date: 20180926
  Receipt Date: 20180926
  Transmission Date: 20181010
  Serious: Yes (Other)
  Sender: FDA-Public Use
  Company Number: FR-MYLANLABS-2018M1069786

PATIENT
  Age: 64 Year
  Sex: Male
  Weight: 102 kg

DRUGS (2)
  1. PIPERACILLINE PANPHARMA [Interacting]
     Active Substance: PIPERACILLIN SODIUM
     Indication: POSTOPERATIVE WOUND INFECTION
     Dosage: 12 G, QD
     Route: 041
     Dates: start: 20180319, end: 20180405
  2. VANCOMYCIN MYLAN [Suspect]
     Active Substance: VANCOMYCIN
     Indication: POSTOPERATIVE WOUND INFECTION
     Dosage: 3000 MG, QD
     Route: 041
     Dates: start: 20180319, end: 20180405

REACTIONS (3)
  - Acute kidney injury [Recovered/Resolved]
  - Antibiotic level above therapeutic [Not Recovered/Not Resolved]
  - Drug interaction [Unknown]

NARRATIVE: CASE EVENT DATE: 20180403
